FAERS Safety Report 7091389-6 (Version None)
Quarter: 2010Q4

REPORT INFORMATION
  Report Type: 
  Country: None (occurrence: None)
  Receive Date: 20101109
  Receipt Date: 20101101
  Transmission Date: 20110411
  Serious: Yes (Other)
  Sender: FDA-Public Use
  Company Number: A0891037A

PATIENT
  Sex: Male
  Weight: 94 kg

DRUGS (1)
  1. AVODART [Suspect]
     Indication: BENIGN PROSTATIC HYPERPLASIA
     Dosage: .5MG IN THE MORNING
     Route: 048
     Dates: start: 20100901, end: 20101026

REACTIONS (3)
  - HYDROCELE [None]
  - PRODUCT QUALITY ISSUE [None]
  - SCROTAL SWELLING [None]
